FAERS Safety Report 14641266 (Version 2)
Quarter: 2018Q1

REPORT INFORMATION
  Report Type: Report from Study
  Country: IT (occurrence: IT)
  Receive Date: 20180315
  Receipt Date: 20180322
  Transmission Date: 20180509
  Serious: No
  Sender: FDA-Public Use
  Company Number: IT-AMGEN-ITACT2018033760

PATIENT
  Age: 68 Year
  Sex: Female
  Weight: 63 kg

DRUGS (6)
  1. BLINATUMOMAB [Suspect]
     Active Substance: BLINATUMOMAB
     Indication: B-CELL LYMPHOMA
     Dosage: 112 MUG, QD
     Route: 042
     Dates: start: 20171030
  2. DEXAMETHASONE. [Concomitant]
     Active Substance: DEXAMETHASONE
     Dosage: 8-24 MG, UNK
     Dates: start: 20171106, end: 20180126
  3. ENOXAPARIN [Concomitant]
     Active Substance: ENOXAPARIN
     Dosage: 4000 UNK, UNK
     Route: 030
     Dates: start: 2016
  4. LEVOTIROXIN [Concomitant]
     Active Substance: LEVOTHYROXINE SODIUM
     Dosage: 175 MUG, UNK
     Route: 048
     Dates: start: 2004
  5. BISOPROLOL [Concomitant]
     Active Substance: BISOPROLOL
     Dosage: 2.5 MG, UNK
     Route: 048
     Dates: start: 2016
  6. CALCIJEX [Concomitant]
     Active Substance: CALCITRIOL
     Dosage: 0.25 MG, UNK
     Route: 048
     Dates: start: 2004

REACTIONS (1)
  - Transplant evaluation [Recovered/Resolved]

NARRATIVE: CASE EVENT DATE: 20180111
